FAERS Safety Report 9523760 (Version 1)
Quarter: 2013Q3

REPORT INFORMATION
  Report Type: Spontaneous
  Country: RU (occurrence: RU)
  Receive Date: 20130915
  Receipt Date: 20130915
  Transmission Date: 20140515
  Serious: Yes (Other)
  Sender: FDA-Public Use
  Company Number: PHHY2013RU099802

PATIENT
  Age: 64 Year
  Sex: Male

DRUGS (1)
  1. ONBREZ [Suspect]
     Indication: CHRONIC OBSTRUCTIVE PULMONARY DISEASE
     Dosage: 150 UG, ONCE/SINGLE
     Dates: start: 20130207, end: 20130207

REACTIONS (1)
  - Electrocardiogram QT prolonged [Recovering/Resolving]
